FAERS Safety Report 8602178-2 (Version None)
Quarter: 2012Q3

REPORT INFORMATION
  Report Type: 
  Country: None (occurrence: None)
  Receive Date: 20120817
  Receipt Date: 20120808
  Transmission Date: 20120928
  Serious: Yes (Other)
  Sender: FDA-Public Use
  Company Number: ZA-JNJFOC-20120807477

PATIENT
  Sex: Female
  Weight: 67 kg

DRUGS (1)
  1. DURAGESIC-100 [Suspect]
     Indication: PAIN
     Route: 062

REACTIONS (6)
  - DRUG INEFFECTIVE [None]
  - MALAISE [None]
  - EYE IRRITATION [None]
  - MUSCULOSKELETAL STIFFNESS [None]
  - DIZZINESS [None]
  - BODY TEMPERATURE INCREASED [None]
